FAERS Safety Report 8707637 (Version 2)
Quarter: 2013Q4

REPORT INFORMATION
  Report Type: Spontaneous
  Country: US (occurrence: US)
  Receive Date: 20120805
  Receipt Date: 20131101
  Transmission Date: 20140711
  Serious: No
  Sender: FDA-Public Use
  Company Number: US-009507513-1207USA010735

PATIENT
  Sex: 0

DRUGS (5)
  1. ZOCOR [Suspect]
     Route: 048
  2. PENICILLIN G POTASSIUM [Suspect]
  3. FLOVENT [Suspect]
  4. DEMEROL [Suspect]
  5. OXYCODONE HYDROCHLORIDE [Suspect]

REACTIONS (2)
  - Drug hypersensitivity [Unknown]
  - Familial risk factor [Unknown]
